FAERS Safety Report 16242271 (Version 3)
Quarter: 2019Q2

REPORT INFORMATION
  Report Type: Spontaneous
  Country: EG (occurrence: EG)
  Receive Date: 20190426
  Receipt Date: 20190603
  Transmission Date: 20190711
  Serious: Yes (Death, Other)
  Sender: FDA-Public Use
  Company Number: EG-SA-2019SA112911

PATIENT
  Age: 3 Year
  Sex: Male
  Weight: 10 kg

DRUGS (1)
  1. IMIGLUCERASE [Suspect]
     Active Substance: IMIGLUCERASE
     Indication: GAUCHER^S DISEASE TYPE III
     Dosage: 60 U
     Route: 041
     Dates: start: 2014, end: 2016

REACTIONS (8)
  - Atrophy [Unknown]
  - Dyspnoea [Fatal]
  - Status epilepticus [Unknown]
  - Asthma [Unknown]
  - Seizure [Fatal]
  - Respiratory failure [Fatal]
  - Dysphagia [Fatal]
  - Gait disturbance [Unknown]

NARRATIVE: CASE EVENT DATE: 2016
